FAERS Safety Report 23971712 (Version 1)
Quarter: 2024Q2

REPORT INFORMATION
  Report Type: Spontaneous
  Country: US (occurrence: None)
  Receive Date: 20240612
  Receipt Date: 20240612
  Transmission Date: 20240716
  Serious: Yes (Hospitalization)
  Sender: FDA-Public Use
  Company Number: None

PATIENT
  Age: 60 Year
  Sex: Female

DRUGS (1)
  1. ZARXIO [Suspect]
     Active Substance: FILGRASTIM-SNDZ
     Indication: Breast cancer female
     Route: 058
     Dates: start: 202405

REACTIONS (2)
  - Fungal infection [None]
  - Dehydration [None]

NARRATIVE: CASE EVENT DATE: 20240606
